FAERS Safety Report 7221019-1 (Version None)
Quarter: 2011Q1

REPORT INFORMATION
  Report Type: 
  Country: None (occurrence: None)
  Receive Date: 20110112
  Receipt Date: 20110111
  Transmission Date: 20110831
  Serious: Yes (Hospitalization, Other)
  Sender: FDA-Public Use
  Company Number: US-PFIZER INC-2010053909

PATIENT
  Sex: Female
  Weight: 74 kg

DRUGS (21)
  1. NAPROXEN [Suspect]
     Dosage: UNK
     Route: 048
     Dates: start: 20080424, end: 20100422
  2. BLINDED *PLACEBO [Suspect]
     Indication: RHEUMATOID ARTHRITIS
  3. CELECOXIB [Suspect]
     Indication: RHEUMATOID ARTHRITIS
  4. NEXIUM [Concomitant]
     Dosage: UNK
     Dates: start: 20100424
  5. NAPROXEN [Suspect]
     Indication: RHEUMATOID ARTHRITIS
  6. FLAGYL [Suspect]
     Indication: DIVERTICULITIS
     Dosage: 500 MG, 3X/DAY
     Route: 048
     Dates: start: 20100408, end: 20100417
  7. CIPRO [Suspect]
     Dosage: 100 MG, UNK
     Route: 048
     Dates: start: 20100408, end: 20100417
  8. IBUPROFEN [Suspect]
     Indication: OSTEOARTHRITIS
     Dosage: UNK
     Route: 048
     Dates: start: 20080424, end: 20100422
  9. BLINDED *NO SUBJECT DRUG [Suspect]
     Indication: OSTEOARTHRITIS
     Dosage: UNK
     Route: 048
     Dates: start: 20080424, end: 20100422
  10. BLINDED *PLACEBO [Suspect]
     Indication: OSTEOARTHRITIS
     Dosage: UNK
     Route: 048
     Dates: start: 20080424, end: 20100422
  11. BLINDED *NO SUBJECT DRUG [Suspect]
     Indication: RHEUMATOID ARTHRITIS
  12. FLAGYL [Suspect]
     Dosage: 1500 MG, UNK
     Route: 048
     Dates: start: 20100408, end: 20100417
  13. IBUPROFEN [Suspect]
     Dosage: UNK
     Route: 048
     Dates: start: 20080424, end: 20100422
  14. VANCOMYCIN [Concomitant]
     Indication: COLITIS
     Dosage: UNK
     Route: 048
     Dates: start: 20100425, end: 20100508
  15. NAPROXEN [Suspect]
     Indication: OSTEOARTHRITIS
     Dosage: UNK
     Route: 048
     Dates: start: 20080424, end: 20100422
  16. CELECOXIB [Suspect]
     Indication: OSTEOARTHRITIS
     Dosage: UNK
     Route: 048
     Dates: start: 20080424, end: 20100422
  17. IBUPROFEN [Suspect]
  18. NAPROXEN [Suspect]
  19. IBUPROFEN [Suspect]
     Indication: RHEUMATOID ARTHRITIS
  20. CIPRO [Suspect]
     Indication: DIVERTICULITIS
     Dosage: 500 MG, 2X/DAY
     Route: 048
     Dates: start: 20100408, end: 20100417
  21. NEXIUM [Concomitant]
     Indication: PROPHYLAXIS AGAINST GASTROINTESTINAL ULCER
     Dosage: 20 OR 40 MG DAILY
     Route: 048
     Dates: start: 20080424

REACTIONS (1)
  - COLITIS [None]
